FAERS Safety Report 4702558-1 (Version None)
Quarter: 2005Q2

REPORT INFORMATION
  Report Type: 
  Country: None (occurrence: None)
  Receive Date: 20050629
  Receipt Date: 20050615
  Transmission Date: 20051028
  Serious: Yes (Death, Hospitalization)
  Sender: FDA-Public Use
  Company Number: ESWYE747415JUN05

PATIENT
  Age: 72 Year
  Sex: Male

DRUGS (2)
  1. ENBREL [Suspect]
     Indication: ANKYLOSING SPONDYLITIS
     Route: 058
     Dates: start: 20050415
  2. METHOTREXATE [Suspect]

REACTIONS (3)
  - APLASIA [None]
  - PANCYTOPENIA [None]
  - RESPIRATORY TRACT INFECTION [None]
